FAERS Safety Report 8554029 (Version 2)
Quarter: 2012Q4

REPORT INFORMATION
  Report Type: 
  Country: KZ (occurrence: None)
  Receive Date: 20120503
  Receipt Date: 20120829
  Transmission Date: 20130627
  Serious: Yes (Hospitalization)
  Sender: FDA-Public Use
  Company Number: NPIL/SEV/H/2012/36

PATIENT
  Age: 30 Year
  Sex: Female
  Weight: 70 kg

DRUGS (5)
  1. SEVOFLURANE [Suspect]
     Indication: ANESTHESIA
     Dosage: INHALATION
     Route: 055
     Dates: start: 20120328, end: 20120328
  2. SEVOFLURANE [Suspect]
     Indication: NASAL SEPTUM DEVIATION
     Dosage: INHALATION
     Route: 055
     Dates: start: 20120328, end: 20120328
  3. EUTIROX (LEVOTHYROXINE) [Concomitant]
  4. ARDUAN (PIPECURONIUM BROMIDE) [Concomitant]
  5. PHENTANYLUM (FENTANYL) [Concomitant]

REACTIONS (5)
  - Myoclonus [None]
  - Face oedema [None]
  - Hyperaemia [None]
  - Angioedema [None]
  - Hypersensitivity [None]
